FAERS Safety Report 22611802 (Version 1)
Quarter: 2023Q2

REPORT INFORMATION
  Report Type: Spontaneous
  Country: US (occurrence: US)
  Receive Date: 20230616
  Receipt Date: 20230616
  Transmission Date: 20230722
  Serious: No
  Sender: FDA-Public Use
  Company Number: US-REVANCE THERAPEUTICS INC.-US-REV-2023-000245

PATIENT

DRUGS (1)
  1. DAXIBOTULINUMTOXIN A-LANM [Suspect]
     Active Substance: DAXIBOTULINUMTOXIN A-LANM
     Indication: Product used for unknown indication
     Dosage: 100 UNITS
     Route: 065
     Dates: start: 20230427

REACTIONS (6)
  - Oedema [Not Recovered/Not Resolved]
  - Erythema [Recovered/Resolved]
  - Dysphagia [Unknown]
  - Pain [Unknown]
  - Lethargy [Unknown]
  - Off label use [Unknown]

NARRATIVE: CASE EVENT DATE: 20230427
